FAERS Safety Report 15530450 (Version 1)
Quarter: 2018Q4

REPORT INFORMATION
  Report Type: Spontaneous
  Country: CN (occurrence: CN)
  Receive Date: 20181018
  Receipt Date: 20181018
  Transmission Date: 20190205
  Serious: Yes (Other)
  Sender: FDA-Public Use
  Company Number: CN-PFIZER INC-2018412495

PATIENT
  Age: 89 Year
  Sex: Male
  Weight: 65 kg

DRUGS (2)
  1. NORVASC [Suspect]
     Active Substance: AMLODIPINE BESYLATE
     Indication: THERAPEUTIC PROCEDURE
     Dosage: 5 MG, 1X/DAY
     Route: 048
     Dates: start: 20180623, end: 20180629
  2. MADOPAR [Suspect]
     Active Substance: BENSERAZIDE HYDROCHLORIDE\LEVODOPA
     Indication: THERAPEUTIC PROCEDURE
     Dosage: 62.5 MG, 3X/DAY
     Route: 048
     Dates: start: 20180627, end: 20180630

REACTIONS (4)
  - Parkinson^s disease [Unknown]
  - Tremor [Recovering/Resolving]
  - Parkinsonism [Unknown]
  - Blood pressure decreased [Recovering/Resolving]

NARRATIVE: CASE EVENT DATE: 201806
